FAERS Safety Report 5281230-6 (Version None)
Quarter: 2007Q1

REPORT INFORMATION
  Report Type: 
  Country: None (occurrence: None)
  Receive Date: 20070323
  Receipt Date: 20070313
  Transmission Date: 20070707
  Serious: Yes (Hospitalization)
  Sender: FDA-Public Use
  Company Number: GXKR2007JP02590

PATIENT
  Age: 73 Year
  Sex: Male

DRUGS (6)
  1. RIFAMPICIN [Suspect]
     Indication: PERITONEAL TUBERCULOSIS
     Dosage: SEE IMAGE
     Dates: start: 20070206, end: 20070306
  2. RIFAMPICIN [Suspect]
     Indication: PERITONEAL TUBERCULOSIS
     Dosage: SEE IMAGE
     Dates: start: 20070313
  3. PYRAZINAMIDE [Concomitant]
  4. ETHAMBUTOL HCL [Concomitant]
  5. ISONIAZID [Concomitant]
  6. AMLODIPINE BESYLATE [Concomitant]

REACTIONS (3)
  - DEPRESSED LEVEL OF CONSCIOUSNESS [None]
  - HYPOTHYROIDISM [None]
  - PSORIASIS [None]
